FAERS Safety Report 19440972 (Version 1)
Quarter: 2021Q2

REPORT INFORMATION
  Report Type: Spontaneous
  Country: JP (occurrence: JP)
  Receive Date: 20210621
  Receipt Date: 20210621
  Transmission Date: 20210717
  Serious: Yes (Other)
  Sender: FDA-Public Use
  Company Number: NVSJ2021JP009261

PATIENT
  Age: 71 Year
  Sex: Male

DRUGS (2)
  1. BEOVU [Suspect]
     Active Substance: BROLUCIZUMAB-DBLL
     Indication: AGE-RELATED MACULAR DEGENERATION
     Dosage: 6 MG
     Route: 031
     Dates: start: 20201006, end: 20201006
  2. BEOVU [Suspect]
     Active Substance: BROLUCIZUMAB-DBLL
     Indication: POLYPOIDAL CHOROIDAL VASCULOPATHY
     Dosage: 6 MG
     Route: 031
     Dates: start: 20210119, end: 20210119

REACTIONS (8)
  - Disease progression [Unknown]
  - Polypoidal choroidal vasculopathy [Unknown]
  - Vision blurred [Unknown]
  - Blindness [Unknown]
  - Retinal infiltrates [Unknown]
  - Choroidal neovascularisation [Unknown]
  - Eye pain [Unknown]
  - Retinal vascular occlusion [Recovering/Resolving]

NARRATIVE: CASE EVENT DATE: 20210119
